FAERS Safety Report 8367109-1 (Version None)
Quarter: 2012Q1

REPORT INFORMATION
  Report Type: 
  Country: None (occurrence: None)
  Receive Date: 20120323
  Receipt Date: 20110728
  Transmission Date: 20120608
  Serious: Yes (Hospitalization)
  Sender: FDA-Public Use
  Company Number: 163-21880-11073284

PATIENT
  Age: 69 Year
  Sex: Female

DRUGS (3)
  1. REVLIMID [Suspect]
     Indication: MULTIPLE MYELOMA
     Dosage: 25 MG, 1 IN 1 D, PO; 20 MG, 1 IN 1 D, PO; 15 MG, QD X21D, PO
     Route: 046
     Dates: start: 20090101, end: 20090101
  2. REVLIMID [Suspect]
     Indication: MULTIPLE MYELOMA
     Dosage: 25 MG, 1 IN 1 D, PO; 20 MG, 1 IN 1 D, PO; 15 MG, QD X21D, PO
     Route: 046
     Dates: start: 20110301
  3. REVLIMID [Suspect]
     Indication: MULTIPLE MYELOMA
     Dosage: 25 MG, 1 IN 1 D, PO; 20 MG, 1 IN 1 D, PO; 15 MG, QD X21D, PO
     Route: 046
     Dates: start: 20100601, end: 20100101

REACTIONS (1)
  - PNEUMONIA [None]
